FAERS Safety Report 17913646 (Version 1)
Quarter: 2020Q2

REPORT INFORMATION
  Report Type: Spontaneous
  Country: US (occurrence: US)
  Receive Date: 20200618
  Receipt Date: 20200618
  Transmission Date: 20200714
  Serious: Yes (Other)
  Sender: FDA-Public Use
  Company Number: US-BAYER-2020-123383

PATIENT
  Age: 87 Year
  Sex: Male

DRUGS (2)
  1. PSYLLIUM HYDROPHILIC MUCILLOID [Suspect]
     Active Substance: PSYLLIUM HUSK
  2. MIRALAX [Suspect]
     Active Substance: POLYETHYLENE GLYCOL 3350
     Indication: GASTROINTESTINAL DISORDER
     Dosage: 1 DF, QD, FOR 6 DAYS
     Route: 048
     Dates: start: 202006, end: 202006

REACTIONS (3)
  - Diarrhoea [Unknown]
  - Abdominal pain [Unknown]
  - Flatulence [Unknown]

NARRATIVE: CASE EVENT DATE: 202006
